FAERS Safety Report 13543939 (Version 1)
Quarter: 2017Q2

REPORT INFORMATION
  Report Type: Spontaneous
  Country: US (occurrence: US)
  Receive Date: 20170515
  Receipt Date: 20170515
  Transmission Date: 20170830
  Serious: No
  Sender: FDA-Public Use
  Company Number: US-TEVA-677338USA

PATIENT
  Age: 51 Year
  Sex: Female

DRUGS (2)
  1. CEFALEXIN [Suspect]
     Active Substance: CEPHALEXIN
     Indication: SKIN INFECTION
     Route: 048
     Dates: start: 201606
  2. CEPHALEXIN. [Suspect]
     Active Substance: CEPHALEXIN
     Indication: INFECTION
     Route: 065

REACTIONS (6)
  - Chest discomfort [Unknown]
  - Product substitution issue [Unknown]
  - Diarrhoea [Unknown]
  - Drug ineffective [Unknown]
  - Skin infection [Unknown]
  - Headache [Unknown]

NARRATIVE: CASE EVENT DATE: 201606
